FAERS Safety Report 15714055 (Version 1)
Quarter: 2018Q4

REPORT INFORMATION
  Report Type: Spontaneous
  Country: US (occurrence: US)
  Receive Date: 20181212
  Receipt Date: 20181212
  Transmission Date: 20190205
  Serious: Yes (Other)
  Sender: FDA-Public Use
  Company Number: US-ASTRAZENECA-2018SF59330

PATIENT

DRUGS (2)
  1. FASLODEX [Suspect]
     Active Substance: FULVESTRANT
     Dosage: UNKNOWN DOSE
     Route: 030
  2. IBRANCE [Suspect]
     Active Substance: PALBOCICLIB
     Dosage: 14 CYCLE OF 125 MG
     Route: 048

REACTIONS (1)
  - Malignant neoplasm progression [Unknown]
